FAERS Safety Report 5130292-5 (Version None)
Quarter: 2006Q4

REPORT INFORMATION
  Report Type: 
  Country: None (occurrence: None)
  Receive Date: 20061019
  Receipt Date: 20060208
  Transmission Date: 20070319
  Serious: Yes (Death)
  Sender: FDA-Public Use
  Company Number: 2006AP00641

PATIENT
  Age: 32837 Day
  Sex: Female

DRUGS (14)
  1. OMEPRAZOLE [Suspect]
     Indication: GASTROSTOMY
     Route: 042
     Dates: start: 20060118, end: 20060124
  2. PANSPORIN [Suspect]
     Indication: GASTROSTOMY
     Route: 042
     Dates: start: 20060118, end: 20060121
  3. CANDESARTAN CILEXETIL [Concomitant]
     Indication: HYPERTENSION
     Dates: start: 19990101, end: 20060117
  4. FAMOTIDINE [Concomitant]
     Indication: GASTRITIS
     Dates: start: 20040101, end: 20060117
  5. BUFFERIN [Concomitant]
     Indication: CEREBRAL INFARCTION
     Dates: end: 20060117
  6. NIFEDIPINE [Concomitant]
     Indication: CEREBRAL INFARCTION
     Dates: end: 20060117
  7. ENALAPRIL MALEATE [Concomitant]
     Indication: HYPERTENSION
     Dates: end: 20060117
  8. FUROSEMIDE [Concomitant]
     Indication: HYPERTENSION
     Dates: end: 20060117
  9. SENNA LEAF [Concomitant]
     Indication: CONSTIPATION
     Dates: end: 20060117
  10. CEFAZOLIN SODIUM [Concomitant]
     Dates: start: 20051220, end: 20051226
  11. AMINOPHYLLINE [Concomitant]
     Dates: start: 20051220
  12. HYDROCORTISONE SODIUM SUCCINATE [Concomitant]
     Dates: start: 20051220
  13. UNASYN [Concomitant]
     Indication: PNEUMONIA
     Route: 042
     Dates: start: 20051229, end: 20060107
  14. UNASYN [Concomitant]
     Route: 042
     Dates: start: 20060124, end: 20060126

REACTIONS (3)
  - ANAEMIA [None]
  - OEDEMA PERIPHERAL [None]
  - PLATELET COUNT DECREASED [None]
